FAERS Safety Report 8584467-3 (Version None)
Quarter: 2012Q3

REPORT INFORMATION
  Report Type: 
  Country: None (occurrence: None)
  Receive Date: 20120730
  Receipt Date: 20120716
  Transmission Date: 20120928
  Serious: Yes (Hospitalization)
  Sender: FDA-Public Use
  Company Number: 2012P1049835

PATIENT
  Age: 65 Year
  Sex: Male

DRUGS (5)
  1. LEVOFLOXACIN [Suspect]
     Indication: OESOPHAGEAL PERFORATION
     Dosage: IV
     Route: 042
  2. ORAL HYPOGLYCEMICS [Concomitant]
  3. METRONIDAZOLE [Suspect]
     Indication: OESOPHAGEAL PERFORATION
     Dosage: IV
     Route: 042
  4. VANCOMYCIN [Suspect]
     Indication: OESOPHAGEAL PERFORATION
     Dosage: IV
     Route: 042
  5. FLUCONAZOLE [Suspect]
     Indication: OESOPHAGEAL PERFORATION
     Dosage: IV
     Route: 042

REACTIONS (18)
  - OEDEMA MUCOSAL [None]
  - DEVICE LEAKAGE [None]
  - PLEURAL EFFUSION [None]
  - MENTAL STATUS CHANGES [None]
  - GENERAL PHYSICAL HEALTH DETERIORATION [None]
  - STRIDOR [None]
  - ENDOTRACHEAL INTUBATION COMPLICATION [None]
  - BLOOD CREATININE INCREASED [None]
  - DRUG RASH WITH EOSINOPHILIA AND SYSTEMIC SYMPTOMS [None]
  - TONGUE OEDEMA [None]
  - METABOLIC ACIDOSIS [None]
  - ARRHYTHMIA SUPRAVENTRICULAR [None]
  - LUNG CONSOLIDATION [None]
  - LARYNGEAL OEDEMA [None]
  - BLOOD LACTIC ACID INCREASED [None]
  - OROPHARYNGEAL SWELLING [None]
  - RESPIRATORY DISTRESS [None]
  - TRACHEAL OEDEMA [None]
